FAERS Safety Report 12695944 (Version 1)
Quarter: 2016Q3

REPORT INFORMATION
  Report Type: Spontaneous
  Country: DE (occurrence: DE)
  Receive Date: 20160829
  Receipt Date: 20160829
  Transmission Date: 20161109
  Serious: Yes (Hospitalization, Other)
  Sender: FDA-Public Use
  Company Number: DE-SA-2016SA154481

PATIENT
  Age: 73 Year
  Sex: Male

DRUGS (5)
  1. DOCETAXEL. [Concomitant]
     Active Substance: DOCETAXEL
     Indication: PROSTATE CANCER
     Route: 042
     Dates: start: 201507, end: 201507
  2. JEVTANA [Suspect]
     Active Substance: CABAZITAXEL
     Indication: PROSTATE CANCER
     Route: 042
     Dates: start: 20160405, end: 20160405
  3. DOCETAXEL. [Concomitant]
     Active Substance: DOCETAXEL
     Indication: PROSTATE CANCER
     Route: 042
     Dates: start: 201502, end: 201502
  4. JEVTANA [Suspect]
     Active Substance: CABAZITAXEL
     Indication: PROSTATE CANCER
     Route: 042
     Dates: start: 20160509, end: 20160509
  5. ENZALUTAMIDE [Concomitant]
     Active Substance: ENZALUTAMIDE
     Route: 065
     Dates: start: 201602, end: 201604

REACTIONS (14)
  - Alveolitis [Recovered/Resolved]
  - Dyspnoea exertional [Recovering/Resolving]
  - Drug ineffective [Unknown]
  - Pneumonia [Unknown]
  - Dyspnoea [Recovering/Resolving]
  - General physical health deterioration [Unknown]
  - Metastases to the mediastinum [Unknown]
  - Pleural effusion [Unknown]
  - Respiratory failure [Unknown]
  - Hypoxia [Unknown]
  - Pyrexia [Unknown]
  - Rash [Unknown]
  - Urinary retention [Unknown]
  - Obesity [Unknown]

NARRATIVE: CASE EVENT DATE: 20160704
